FAERS Safety Report 11741277 (Version 7)
Quarter: 2017Q3

REPORT INFORMATION
  Report Type: Spontaneous
  Country: US (occurrence: US)
  Receive Date: 20151116
  Receipt Date: 20170717
  Transmission Date: 20171127
  Serious: Yes (Hospitalization, Other)
  Sender: FDA-Public Use
  Company Number: PHEH2015US022920

PATIENT
  Sex: Female
  Weight: 46.71 kg

DRUGS (3)
  1. ZOFRAN [Suspect]
     Active Substance: ONDANSETRON HYDROCHLORIDE
     Indication: VOMITING IN PREGNANCY
     Route: 048
  2. ONDANSETRON [Suspect]
     Active Substance: ONDANSETRON
     Indication: PRODUCT USED FOR UNKNOWN INDICATION
     Route: 048
  3. ONDANSETRONE DR. REDDY^S [Suspect]
     Active Substance: ONDANSETRON HYDROCHLORIDE
     Indication: VOMITING IN PREGNANCY
     Dosage: 04 MG, UNK
     Route: 065
     Dates: start: 20120329, end: 20120508

REACTIONS (13)
  - Premature rupture of membranes [Unknown]
  - Premature labour [Unknown]
  - Cystitis [Unknown]
  - Maternal exposure during pregnancy [Unknown]
  - Anxiety [Unknown]
  - Premature delivery [Unknown]
  - Emotional distress [Unknown]
  - Genitourinary tract infection [Unknown]
  - Pain [Unknown]
  - Injury [Unknown]
  - Product use in unapproved indication [Unknown]
  - Pyelonephritis [Unknown]
  - Anhedonia [Unknown]
